FAERS Safety Report 5702097-5 (Version None)
Quarter: 2008Q2

REPORT INFORMATION
  Report Type: 
  Country: None (occurrence: None)
  Receive Date: 20080411
  Receipt Date: 20070720
  Transmission Date: 20081010
  Serious: No
  Sender: FDA-Public Use
  Company Number: US-ABBOTT-07P-163-0375466-00

PATIENT
  Sex: Female
  Weight: 61.744 kg

DRUGS (1)
  1. DEPAKOTE [Suspect]
     Indication: BIPOLAR DISORDER
     Dosage: UNKNOWN MG
     Route: 048
     Dates: start: 20000101, end: 20040101

REACTIONS (3)
  - ALOPECIA [None]
  - FATIGUE [None]
  - WEIGHT INCREASED [None]
